FAERS Safety Report 17913666 (Version 1)
Quarter: 2020Q2

REPORT INFORMATION
  Report Type: Spontaneous
  Country: US (occurrence: US)
  Receive Date: 20200618
  Receipt Date: 20200618
  Transmission Date: 20200714
  Serious: Yes (Hospitalization)
  Sender: FDA-Public Use
  Company Number: US-ROCHE-2624851

PATIENT
  Age: 13 Year
  Sex: Female
  Weight: 44.4 kg

DRUGS (6)
  1. PREDNISONE. [Concomitant]
     Active Substance: PREDNISONE
  2. SODIUM BICARBONATE. [Concomitant]
     Active Substance: SODIUM BICARBONATE
  3. ALDACTONE [Concomitant]
     Active Substance: SPIRONOLACTONE
  4. CRESTOR [Concomitant]
     Active Substance: ROSUVASTATIN CALCIUM
  5. CELLCEPT [Suspect]
     Active Substance: MYCOPHENOLATE MOFETIL\MYCOPHENOLATE MOFETIL HYDROCHLORIDE
     Indication: TRANSPLANT
     Route: 065
  6. VIT D [Concomitant]
     Active Substance: VITAMIN D NOS

REACTIONS (1)
  - Full blood count abnormal [Unknown]

NARRATIVE: CASE EVENT DATE: 20200318
